FAERS Safety Report 23805315 (Version 1)
Quarter: 2024Q2

REPORT INFORMATION
  Report Type: Spontaneous
  Country: CN (occurrence: CN)
  Receive Date: 20240502
  Receipt Date: 20240502
  Transmission Date: 20240715
  Serious: Yes (Other)
  Sender: FDA-Public Use
  Company Number: None

PATIENT
  Age: 33 Year
  Sex: Female
  Weight: 65 kg

DRUGS (4)
  1. CYCLOPHOSPHAMIDE [Suspect]
     Active Substance: CYCLOPHOSPHAMIDE
     Indication: Breast cancer female
     Dosage: 1 G, QD, DILUTED WITH 100 ML OF 0.9% SODIUM CHLORIDE, THIRD CYCLE OF TC REGIMEN
     Route: 041
     Dates: start: 20240416, end: 20240418
  2. PACLITAXEL [Suspect]
     Active Substance: PACLITAXEL
     Indication: Breast cancer female
     Dosage: 450 MG, QD, DILUTED WITH 100 ML OF 0.9% SODIUM CHLORIDE, THIRD CYCLE OF TC REGIMEN
     Route: 041
     Dates: start: 20240416, end: 20240418
  3. SODIUM CHLORIDE [Suspect]
     Active Substance: SODIUM CHLORIDE
     Indication: Medication dilution
     Dosage: 100 ML, QD, USED TO DILUTE 1 G OF CYCLOPHOSPHAMIDE, THIRD CYCLE OF TC REGIMEN
     Route: 041
     Dates: start: 20240416, end: 20240418
  4. SODIUM CHLORIDE [Suspect]
     Active Substance: SODIUM CHLORIDE
     Dosage: 100 ML, QD, USED TO DILUTE 450 MG OF PACLITAXEL, THIRD CYCLE OF TC REGIMEN
     Route: 041
     Dates: start: 20240416, end: 20240418

REACTIONS (8)
  - Syncope [Recovering/Resolving]
  - Cold sweat [Recovering/Resolving]
  - Pain [Recovering/Resolving]
  - Rash erythematous [Recovering/Resolving]
  - Pruritus [Recovering/Resolving]
  - Nausea [Recovering/Resolving]
  - Dizziness [Recovering/Resolving]
  - Tinnitus [Recovering/Resolving]

NARRATIVE: CASE EVENT DATE: 20240424
